FAERS Safety Report 21453614 (Version 2)
Quarter: 2022Q4

REPORT INFORMATION
  Report Type: Spontaneous
  Country: US (occurrence: US)
  Receive Date: 20221013
  Receipt Date: 20221026
  Transmission Date: 20230112
  Serious: Yes (Hospitalization, Other)
  Sender: FDA-Public Use
  Company Number: US-009507513-2210USA004183

PATIENT
  Sex: Female
  Weight: 62.59 kg

DRUGS (11)
  1. NOXAFIL [Suspect]
     Active Substance: POSACONAZOLE
     Indication: Pneumonia fungal
     Dosage: UNK
     Route: 048
     Dates: start: 202203
  2. NOXAFIL [Suspect]
     Active Substance: POSACONAZOLE
     Dosage: 200 MILLIGRAM, QD
     Route: 048
     Dates: start: 20220419
  3. NOXAFIL [Suspect]
     Active Substance: POSACONAZOLE
     Dosage: 200 MILLIGRAMS ONE DAY AND THEN NEXT DAY 100 MILLIGRAMS
     Route: 048
     Dates: start: 20221012
  4. POTASSIUM [Concomitant]
     Active Substance: POTASSIUM
     Dosage: FORMULATION: PILLS
  5. AMOXICILLIN [Concomitant]
     Active Substance: AMOXICILLIN
  6. PREDNISONE [Concomitant]
     Active Substance: PREDNISONE
  7. METOPROLOL [Concomitant]
     Active Substance: METOPROLOL
  8. CHOLECALCIFEROL [Concomitant]
     Active Substance: CHOLECALCIFEROL
  9. VITAMIN C [Concomitant]
     Active Substance: ASCORBIC ACID
  10. AMLODIPINE [Concomitant]
     Active Substance: AMLODIPINE BESYLATE
  11. ADVAIR HFA [Concomitant]
     Active Substance: FLUTICASONE PROPIONATE\SALMETEROL XINAFOATE

REACTIONS (4)
  - Sepsis [Recovered/Resolved]
  - Urinary tract infection [Recovered/Resolved]
  - Incorrect dose administered [Unknown]
  - Incorrect dose administered [Unknown]

NARRATIVE: CASE EVENT DATE: 20220101
